FAERS Safety Report 10498401 (Version 2)
Quarter: 2014Q4

REPORT INFORMATION
  Report Type: Spontaneous
  Country: US (occurrence: US)
  Receive Date: 20141006
  Receipt Date: 20141024
  Transmission Date: 20150528
  Serious: Yes (Hospitalization, Other)
  Sender: FDA-Public Use
  Company Number: US-TEVA-513395USA

PATIENT
  Age: 70 Year
  Sex: Female

DRUGS (6)
  1. METOPROLOL TARTRATE. [Concomitant]
     Active Substance: METOPROLOL TARTRATE
  2. SIMVASTATIN. [Concomitant]
     Active Substance: SIMVASTATIN
  3. CELEXA [Concomitant]
     Active Substance: CITALOPRAM HYDROBROMIDE
  4. LORAZEPAM. [Concomitant]
     Active Substance: LORAZEPAM
  5. ACETAMINOPHEN. [Concomitant]
     Active Substance: ACETAMINOPHEN
  6. CLOPIDOGREL [Suspect]
     Active Substance: CLOPIDOGREL BISULFATE
     Indication: TRANSIENT ISCHAEMIC ATTACK
     Dosage: 75 MILLIGRAM DAILY;
     Route: 048
     Dates: start: 20140103

REACTIONS (15)
  - Investigation [Recovered/Resolved]
  - Muscle spasms [Unknown]
  - Blood sodium decreased [Unknown]
  - Contusion [Not Recovered/Not Resolved]
  - Vulvovaginal mycotic infection [Unknown]
  - Vulvovaginal mycotic infection [Unknown]
  - Fatigue [Unknown]
  - Cellulitis [Unknown]
  - Transient global amnesia [Unknown]
  - Confusional state [Unknown]
  - Blood potassium decreased [Unknown]
  - Dizziness [Unknown]
  - Bronchitis [Unknown]
  - Presyncope [Unknown]
  - Diplopia [Unknown]

NARRATIVE: CASE EVENT DATE: 201402
